FAERS Safety Report 7414404-6 (Version None)
Quarter: 2011Q2

REPORT INFORMATION
  Report Type: 
  Country: None (occurrence: None)
  Receive Date: 20110407
  Receipt Date: 20110328
  Transmission Date: 20111010
  Serious: Yes (Death, Hospitalization)
  Sender: FDA-Public Use
  Company Number: LEO-2011-00319

PATIENT
  Age: 74 Year
  Sex: Female

DRUGS (4)
  1. WARFARIN (WARFARIN) [Suspect]
     Indication: DEEP VEIN THROMBOSIS
     Dosage: 15 MG, 10 MG, 5 MG
  2. WARFARIN (WARFARIN) [Suspect]
     Indication: PULMONARY EMBOLISM
     Dosage: 15 MG, 10 MG, 5 MG
  3. INNOHEP [Suspect]
     Indication: DEEP VEIN THROMBOSIS
     Dosage: SUBCUTANEOUS
     Route: 058
  4. INNOHEP [Suspect]
     Indication: PULMONARY EMBOLISM
     Dosage: SUBCUTANEOUS
     Route: 058

REACTIONS (7)
  - MULTI-ORGAN FAILURE [None]
  - SEPTIC SHOCK [None]
  - RENAL FAILURE ACUTE [None]
  - PULSELESS ELECTRICAL ACTIVITY [None]
  - SKIN NECROSIS [None]
  - CARDIOPULMONARY FAILURE [None]
  - HEPARIN-INDUCED THROMBOCYTOPENIA [None]
